FAERS Safety Report 7326925-5 (Version None)
Quarter: 2011Q1

REPORT INFORMATION
  Report Type: 
  Country: None (occurrence: None)
  Receive Date: 20110302
  Receipt Date: 20110223
  Transmission Date: 20110831
  Serious: Yes (Death, Hospitalization)
  Sender: FDA-Public Use
  Company Number: GB-PFIZER INC-2010014712

PATIENT
  Age: 74 Year
  Sex: Female

DRUGS (2)
  1. SUNITINIB MALATE [Suspect]
     Dosage: 37.5 MG, 1X/DAY
     Route: 048
     Dates: start: 20091207, end: 20100110
  2. SUNITINIB MALATE [Suspect]
     Indication: RENAL CELL CARCINOMA
     Dosage: 50 MG, 1X/DAY
     Route: 048
     Dates: start: 20091029, end: 20091206

REACTIONS (2)
  - INTESTINAL OBSTRUCTION [None]
  - CHRONIC OBSTRUCTIVE PULMONARY DISEASE [None]
